FAERS Safety Report 17778440 (Version 18)
Quarter: 2020Q4

REPORT INFORMATION
  Report Type: Report from Study
  Country: FR (occurrence: FR)
  Receive Date: 20200513
  Receipt Date: 20201102
  Transmission Date: 20210113
  Serious: Yes (Death, Life-Threatening, Other)
  Sender: FDA-Public Use
  Company Number: FR-ROCHE-2597386

PATIENT
  Age: 65 Year
  Sex: Male

DRUGS (32)
  1. TOCILIZUMAB. [Suspect]
     Active Substance: TOCILIZUMAB
     Indication: CORONAVIRUS INFECTION
     Dosage: ON 04/APR/2020 (800 MG)?ON 08/APR/2020 (400 MG)?DOSE 20 MG/ML
     Route: 042
     Dates: start: 20200406, end: 20200406
  2. TOCILIZUMAB. [Suspect]
     Active Substance: TOCILIZUMAB
     Dosage: 20 MG/ML
     Route: 042
     Dates: start: 20200406
  3. ATRACURIUM [Concomitant]
     Active Substance: ATRACURIUM
  4. HYDROCORTISONE SUCCINATE [Concomitant]
  5. STAGID [Concomitant]
     Active Substance: METFORMIN PAMOATE
  6. PRAVASTATINE [Concomitant]
     Active Substance: PRAVASTATIN
  7. HYDROCORTISONE. [Concomitant]
     Active Substance: HYDROCORTISONE
  8. KAYEXALATE [Concomitant]
     Active Substance: SODIUM POLYSTYRENE SULFONATE
  9. HEPARIN [Suspect]
     Active Substance: HEPARIN SODIUM
     Indication: CORONAVIRUS INFECTION
     Route: 065
  10. PROPOFOL. [Suspect]
     Active Substance: PROPOFOL
     Indication: SEDATION
     Route: 042
     Dates: start: 20200403
  11. AMIKACINE [Suspect]
     Active Substance: AMIKACIN
     Indication: PRODUCT USED FOR UNKNOWN INDICATION
     Route: 042
     Dates: start: 20200430
  12. CORDARONE [Concomitant]
     Active Substance: AMIODARONE HYDROCHLORIDE
  13. TOCILIZUMAB. [Suspect]
     Active Substance: TOCILIZUMAB
     Dosage: ON 04/APR/2020 (800 MG)?DOSE 20 MG/ML
     Route: 042
     Dates: start: 20200408, end: 20200408
  14. HYDROCORTISONE HEMISUCCINATE [Concomitant]
     Active Substance: HYDROCORTISONE HEMISUCCINATE
  15. GLUCOSE [Concomitant]
     Active Substance: DEXTROSE
  16. ENOXAPARIN SODIUM. [Suspect]
     Active Substance: ENOXAPARIN SODIUM
     Indication: PRODUCT USED FOR UNKNOWN INDICATION
     Route: 065
     Dates: start: 20200405
  17. MIDAZOLAM. [Concomitant]
     Active Substance: MIDAZOLAM
  18. MEROPENEM. [Concomitant]
     Active Substance: MEROPENEM
     Route: 042
     Dates: start: 20200430
  19. INSULIN [Concomitant]
     Active Substance: INSULIN NOS
  20. CATAPRESSAN [Concomitant]
     Active Substance: CLONIDINE
  21. VALIUM [Concomitant]
     Active Substance: DIAZEPAM
  22. PRAVASTATINE [Concomitant]
     Active Substance: PRAVASTATIN
  23. AMPHOTERICIN B. [Concomitant]
     Active Substance: AMPHOTERICIN B
  24. NITROUS OXIDE. [Concomitant]
     Active Substance: NITROUS OXIDE
  25. TOCILIZUMAB. [Suspect]
     Active Substance: TOCILIZUMAB
     Route: 042
  26. NEURONTIN [Suspect]
     Active Substance: GABAPENTIN
     Indication: DIABETIC NEUROPATHY
     Route: 065
     Dates: start: 20200408
  27. FUROSEMIDE. [Concomitant]
     Active Substance: FUROSEMIDE
  28. SUFENTANIL [Concomitant]
     Active Substance: SUFENTANIL
  29. FLUDROCORTISONE [Concomitant]
     Active Substance: FLUDROCORTISONE
  30. MEROPENEM. [Suspect]
     Active Substance: MEROPENEM
     Indication: PRODUCT USED FOR UNKNOWN INDICATION
     Route: 065
     Dates: start: 20200430
  31. ARGATROBAN. [Concomitant]
     Active Substance: ARGATROBAN
  32. AMBISOME [Concomitant]
     Active Substance: AMPHOTERICIN B

REACTIONS (18)
  - Pneumonia bacterial [Fatal]
  - Pneumonia [Fatal]
  - Anaemia [Not Recovered/Not Resolved]
  - Mucormycosis [Fatal]
  - Citrobacter infection [Not Recovered/Not Resolved]
  - Hyperleukocytosis [Recovered/Resolved]
  - Pulmonary embolism [Fatal]
  - Achromobacter infection [Fatal]
  - Septic shock [Recovered/Resolved]
  - Heparin-induced thrombocytopenia [Recovered/Resolved]
  - Hypovolaemic shock [Recovered/Resolved]
  - Gamma-glutamyltransferase increased [Unknown]
  - Septic shock [Fatal]
  - Pleural effusion [Fatal]
  - Adrenal insufficiency [Not Recovered/Not Resolved]
  - Oesophagitis [Not Recovered/Not Resolved]
  - Acute kidney injury [Fatal]
  - Mucormycosis [Not Recovered/Not Resolved]

NARRATIVE: CASE EVENT DATE: 20200410
